FAERS Safety Report 7123569-5 (Version None)
Quarter: 2010Q4

REPORT INFORMATION
  Report Type: 
  Country: None (occurrence: None)
  Receive Date: 20101125
  Receipt Date: 20101123
  Transmission Date: 20110411
  Serious: Yes (Death)
  Sender: FDA-Public Use
  Company Number: AU-SHIRE-SPV1-2010-02041

PATIENT

DRUGS (1)
  1. AGRYLIN [Suspect]
     Indication: THROMBOCYTOSIS
     Dosage: UNK, UNKNOWN
     Route: 065

REACTIONS (2)
  - DEATH [None]
  - FLUID RETENTION [None]
